FAERS Safety Report 23998073 (Version 1)
Quarter: 2024Q2

REPORT INFORMATION
  Report Type: Spontaneous
  Country: JP (occurrence: JP)
  Receive Date: 20240621
  Receipt Date: 20240621
  Transmission Date: 20240716
  Serious: Yes (Other)
  Sender: FDA-Public Use
  Company Number: JP-ALK-ABELLO A/S-2024AA002469

PATIENT

DRUGS (1)
  1. MITICURE [Suspect]
     Active Substance: DERMATOPHAGOIDES FARINAE\DERMATOPHAGOIDES PTERONYSSINUS
     Indication: Product used for unknown indication
     Dosage: 3300 JAU, QD
     Route: 060
     Dates: start: 20240601, end: 20240601

REACTIONS (2)
  - Anaphylactic reaction [Recovered/Resolved]
  - Subglottic laryngitis [Recovered/Resolved]

NARRATIVE: CASE EVENT DATE: 20240601
